FAERS Safety Report 21236907 (Version 1)
Quarter: 2022Q3

REPORT INFORMATION
  Report Type: Spontaneous
  Country: US (occurrence: US)
  Receive Date: 20220822
  Receipt Date: 20220822
  Transmission Date: 20221026
  Serious: No
  Sender: FDA-Public Use
  Company Number: US-TEVA-2022-US-2062244

PATIENT
  Age: 57 Year
  Sex: Female
  Weight: 57 kg

DRUGS (5)
  1. AJOVY [Suspect]
     Active Substance: FREMANEZUMAB-VFRM
     Indication: Migraine
     Dosage: 225/1.5 MG/ML
     Route: 065
     Dates: start: 202205
  2. AJOVY [Suspect]
     Active Substance: FREMANEZUMAB-VFRM
     Dosage: 225/1.5 MG/ML
     Route: 065
     Dates: start: 20220430
  3. NURTEC ODT [Concomitant]
     Active Substance: RIMEGEPANT SULFATE
     Indication: Product used for unknown indication
  4. FLEXERIL [Concomitant]
     Active Substance: CYCLOBENZAPRINE HYDROCHLORIDE
     Indication: Product used for unknown indication
  5. GABAPENTIN [Concomitant]
     Active Substance: GABAPENTIN
     Indication: Product used for unknown indication

REACTIONS (7)
  - Migraine [Unknown]
  - COVID-19 [Unknown]
  - Device issue [Unknown]
  - Drug dose omission by device [Unknown]
  - Injection site mass [Unknown]
  - Injection site pruritus [Unknown]
  - Headache [Unknown]

NARRATIVE: CASE EVENT DATE: 20220101
